FAERS Safety Report 7829874-9 (Version None)
Quarter: 2011Q4

REPORT INFORMATION
  Report Type: 
  Country: None (occurrence: None)
  Receive Date: 20111018
  Receipt Date: 20111003
  Transmission Date: 20120403
  Serious: Yes (Other)
  Sender: FDA-Public Use
  Company Number: 2011PL000139

PATIENT
  Age: 59 Year
  Sex: Male

DRUGS (4)
  1. PROLEUKIN [Suspect]
     Indication: MALIGNANT MELANOMA
     Dosage: 600000 IU/KG' Q8H; IV
     Route: 042
  2. PROLEUKIN [Suspect]
     Indication: METASTASES TO LIVER
     Dosage: 600000 IU/KG' Q8H; IV
     Route: 042
  3. PROLEUKIN [Suspect]
     Indication: METASTASES TO LUNG
     Dosage: 600000 IU/KG' Q8H; IV
     Route: 042
  4. SODIUM CHLORIDE [Concomitant]

REACTIONS (1)
  - INAPPROPRIATE ANTIDIURETIC HORMONE SECRETION [None]
